FAERS Safety Report 5860558-2 (Version None)
Quarter: 2008Q3

REPORT INFORMATION
  Report Type: 
  Country: None (occurrence: None)
  Receive Date: 20080827
  Receipt Date: 20070907
  Transmission Date: 20090109
  Serious: No
  Sender: FDA-Public Use
  Company Number: US-ABBOTT-07P-163-0416275-00

PATIENT
  Sex: Male
  Weight: 86.714 kg

DRUGS (2)
  1. NIASPAN [Suspect]
     Indication: CARDIAC DISORDER
     Route: 048
     Dates: start: 20070824
  2. SEVEN UNREPORTED MEDICATIONS [Concomitant]
     Indication: DRUG USE FOR UNKNOWN INDICATION

REACTIONS (2)
  - FLUSHING [None]
  - PRURITUS [None]
